FAERS Safety Report 20643762 (Version 1)
Quarter: 2022Q1

REPORT INFORMATION
  Report Type: Spontaneous
  Country: US (occurrence: US)
  Receive Date: 20220328
  Receipt Date: 20220328
  Transmission Date: 20220423
  Serious: No
  Sender: FDA-Public Use
  Company Number: US-AMGEN-USASP2022049142

PATIENT
  Sex: Female

DRUGS (2)
  1. REPATHA [Suspect]
     Active Substance: EVOLOCUMAB
     Indication: Hypercholesterolaemia
     Dosage: 140 MILLIGRAM, Q2WK
     Route: 065
     Dates: start: 202104
  2. INSULIN NOS [Concomitant]
     Active Substance: INSULIN NOS
     Dosage: FOUR TIMES A DAY
     Route: 065

REACTIONS (4)
  - Pain [Unknown]
  - Nerve compression [Unknown]
  - Blood glucose fluctuation [Unknown]
  - Arthralgia [Unknown]
